FAERS Safety Report 5008905-8 (Version None)
Quarter: 2006Q2

REPORT INFORMATION
  Report Type: 
  Country: None (occurrence: None)
  Receive Date: 20060519
  Receipt Date: 20060508
  Transmission Date: 20061013
  Serious: Yes (Hospitalization)
  Sender: FDA-Public Use
  Company Number: 224610

PATIENT
  Age: 37 Year
  Sex: Male

DRUGS (1)
  1. RAPTIVA [Suspect]
     Indication: PSORIASIS
     Dosage: 102 MG, SUBCUTANEOUS
     Route: 057
     Dates: start: 20060301, end: 20060426

REACTIONS (3)
  - ARTHROPATHY [None]
  - BACK PAIN [None]
  - JOINT EFFUSION [None]
